FAERS Safety Report 11747654 (Version 3)
Quarter: 2016Q2

REPORT INFORMATION
  Report Type: Spontaneous
  Country: US (occurrence: US)
  Receive Date: 20151117
  Receipt Date: 20160512
  Transmission Date: 20160815
  Serious: Yes (Other)
  Sender: FDA-Public Use
  Company Number: US-MDT-ADR-2015-02169

PATIENT
  Age: 21 Year
  Sex: Female

DRUGS (7)
  1. ZANAFLEX [Suspect]
     Active Substance: TIZANIDINE HYDROCHLORIDE
  2. COMPOUNDED BACLOFEN [Suspect]
     Active Substance: BACLOFEN
     Dosage: 180.13MCG/DAY
     Route: 037
     Dates: start: 20151009
  3. DILAUDID [Suspect]
     Active Substance: HYDROMORPHONE HYDROCHLORIDE
     Dosage: .6004MG/DAY
     Route: 037
     Dates: start: 20151009
  4. GABAPENTIN. [Suspect]
     Active Substance: GABAPENTIN
  5. BUPIVACAINE. [Suspect]
     Active Substance: BUPIVACAINE
     Dosage: 6.004MG/DAY
     Route: 037
     Dates: start: 20151009
  6. TRAMADOL. [Suspect]
     Active Substance: TRAMADOL
  7. PHENERGAN [Suspect]
     Active Substance: PROMETHAZINE HYDROCHLORIDE

REACTIONS (3)
  - Gait disturbance [Unknown]
  - Drug withdrawal syndrome [Unknown]
  - Hypoaesthesia [Unknown]

NARRATIVE: CASE EVENT DATE: 201507
